FAERS Safety Report 6248575-4 (Version None)
Quarter: 2009Q2

REPORT INFORMATION
  Report Type: 
  Country: None (occurrence: None)
  Receive Date: 20090624
  Receipt Date: 20090624
  Transmission Date: 20091009
  Serious: Yes (Hospitalization)
  Sender: FDA-Public Use
  Company Number: None

PATIENT
  Age: 29 Year
  Sex: Female
  Weight: 59.5 kg

DRUGS (2)
  1. EPOPROSTENOL SODIUM [Suspect]
     Indication: PULMONARY HYPERTENSION
     Dosage: 9NG PER KG PER MIN CONTINUOUS INTRAVENOUS
     Route: 042
     Dates: start: 20090514, end: 20090529
  2. EPOPROSTENOL SODIUM [Suspect]
     Indication: PULMONARY HYPERTENSION
     Dosage: 51ML DAILY CONTINOUS INTRAVENOUS
     Route: 042
     Dates: start: 20090514, end: 20090529

REACTIONS (4)
  - AURICULAR SWELLING [None]
  - BLISTER [None]
  - LOCAL SWELLING [None]
  - RASH [None]
